FAERS Safety Report 9299411 (Version 2)
Quarter: 2013Q2

REPORT INFORMATION
  Report Type: Spontaneous
  Country: DK (occurrence: DK)
  Receive Date: 20130520
  Receipt Date: 20130528
  Transmission Date: 20140414
  Serious: Yes (Death, Hospitalization)
  Sender: FDA-Public Use
  Company Number: DK-B.I. PHARMACEUTICALS,INC./RIDGEFIELD-2013-SW-00261DB

PATIENT
  Sex: Male

DRUGS (6)
  1. PRADAXA [Suspect]
     Indication: ATRIAL FIBRILLATION
     Dosage: 300 MG
     Route: 048
     Dates: start: 20121002
  2. METOPROLOL [Concomitant]
     Dosage: 1 ANZ
  3. FURIX [Concomitant]
     Dosage: 5 ANZ
  4. HJERTEMAGNYL [Concomitant]
  5. KALEORID [Concomitant]
  6. BLOOD PRESSURE LOWERING DRUG [Concomitant]

REACTIONS (3)
  - Death [Fatal]
  - Dyspnoea [Unknown]
  - Anaemia [Unknown]
